FAERS Safety Report 6341533-0 (Version None)
Quarter: 2009Q3

REPORT INFORMATION
  Report Type: 
  Country: None (occurrence: None)
  Receive Date: 20090904
  Receipt Date: 20090827
  Transmission Date: 20100115
  Serious: No
  Sender: FDA-Public Use
  Company Number: JP-MERCK-0908USA00127

PATIENT
  Age: 93 Year
  Sex: Female
  Weight: 35 kg

DRUGS (2)
  1. PEPCID [Suspect]
     Route: 042
     Dates: start: 20081018, end: 20081125
  2. FAMOSTAGINE [Concomitant]
     Route: 048
     Dates: start: 20081126, end: 20090722

REACTIONS (1)
  - HAEMOLYTIC ANAEMIA [None]
